FAERS Safety Report 9057626 (Version 1)
Quarter: 2013Q1

REPORT INFORMATION
  Report Type: Spontaneous
  Country: US (occurrence: None)
  Receive Date: 20130204
  Receipt Date: 20130204
  Transmission Date: 20140127
  Serious: Yes (Hospitalization)
  Sender: FDA-Public Use
  Company Number: None

PATIENT
  Age: 77 Year
  Sex: Male
  Weight: 95.4 kg

DRUGS (8)
  1. NEURONTIN [Suspect]
     Indication: PAIN
     Dosage: 1 TABLET BID PO  RECENT
     Route: 048
  2. FENFIBRATE [Concomitant]
  3. INSULIN GARGINE [Concomitant]
  4. BUPROPION [Concomitant]
  5. MECLIZINE [Concomitant]
  6. INSULIN LISPRO PROTAMINE [Concomitant]
  7. HUMALOG [Concomitant]
  8. FERROUS SULFATE [Concomitant]

REACTIONS (4)
  - Dysphagia [None]
  - Pneumonia [None]
  - Sensation of foreign body [None]
  - Acquired oesophageal web [None]
